FAERS Safety Report 8403331 (Version 3)
Quarter: 2012Q4

REPORT INFORMATION
  Report Type: 
  Country: BD (occurrence: BD)
  Receive Date: 20120213
  Receipt Date: 20120910
  Transmission Date: 20130627
  Serious: Yes (Death, Other)
  Sender: FDA-Public Use
  Company Number: PHHY2012BD011562

PATIENT
  Age: 34 Year
  Sex: Male

DRUGS (1)
  1. SEBIVO [Suspect]
     Indication: HEPATITIS B
     Dosage: UNK
     Dates: start: 20090201

REACTIONS (2)
  - Cardiopulmonary failure [Fatal]
  - Generalised oedema [Unknown]
